FAERS Safety Report 13625073 (Version 1)
Quarter: 2017Q2

REPORT INFORMATION
  Report Type: Spontaneous
  Country: US (occurrence: US)
  Receive Date: 20170607
  Receipt Date: 20170607
  Transmission Date: 20170830
  Serious: No
  Sender: FDA-Public Use
  Company Number: US-JNJFOC-20170515358

PATIENT
  Sex: Male
  Weight: 99.79 kg

DRUGS (2)
  1. RISPERDAL [Suspect]
     Active Substance: RISPERIDONE
     Indication: INSOMNIA
     Route: 048
     Dates: start: 2007
  2. RISPERDAL [Suspect]
     Active Substance: RISPERIDONE
     Indication: INSOMNIA
     Route: 048
     Dates: end: 2016

REACTIONS (7)
  - Performance status decreased [Unknown]
  - Product use in unapproved indication [Unknown]
  - Incorrect dose administered [Unknown]
  - Breast enlargement [Not Recovered/Not Resolved]
  - Laziness [Unknown]
  - Off label use [Unknown]
  - Impaired work ability [Unknown]

NARRATIVE: CASE EVENT DATE: 2007
